FAERS Safety Report 7789356-X (Version None)
Quarter: 2011Q3

REPORT INFORMATION
  Report Type: 
  Country: None (occurrence: None)
  Receive Date: 20110930
  Receipt Date: 20110921
  Transmission Date: 20111222
  Serious: Yes (Hospitalization)
  Sender: FDA-Public Use
  Company Number: FR-GLAXOSMITHKLINE-B0749258A

PATIENT
  Sex: Male

DRUGS (2)
  1. DEXAMETHASONE [Concomitant]
     Indication: AMYLOIDOSIS
  2. ALKERAN [Suspect]
     Indication: AMYLOIDOSIS
     Route: 042
     Dates: start: 20101026, end: 20101128

REACTIONS (1)
  - RENAL FAILURE ACUTE [None]
